FAERS Safety Report 7294166-6 (Version None)
Quarter: 2011Q1

REPORT INFORMATION
  Report Type: 
  Country: None (occurrence: None)
  Receive Date: 20110215
  Receipt Date: 20110211
  Transmission Date: 20110831
  Serious: Yes (Hospitalization, Other)
  Sender: FDA-Public Use
  Company Number: US-PFIZER INC-2010154495

PATIENT
  Sex: Female

DRUGS (6)
  1. HYDROCHLOROTHIAZIDE [Concomitant]
     Indication: HYPERTENSION
     Dosage: UNK
     Dates: start: 19960101
  2. PAXIL [Concomitant]
     Indication: ANXIETY
  3. LISINOPRIL [Concomitant]
     Indication: HYPERTENSION
     Dosage: UNK
     Dates: start: 19960101
  4. CHANTIX [Suspect]
     Indication: SMOKING CESSATION THERAPY
     Dosage: 1 MG, UNK (STARTER PACK)
     Dates: start: 20080828, end: 20081125
  5. ATIVAN [Concomitant]
     Indication: ANXIETY
     Dosage: UNK
     Dates: start: 20080821
  6. PAXIL [Concomitant]
     Indication: DEPRESSION
     Dosage: UNK
     Dates: start: 19960101

REACTIONS (4)
  - DEPRESSION [None]
  - ANXIETY [None]
  - INTENTIONAL OVERDOSE [None]
  - SUICIDE ATTEMPT [None]
